FAERS Safety Report 4929948-6 (Version None)
Quarter: 2006Q1

REPORT INFORMATION
  Report Type: 
  Country: None (occurrence: None)
  Receive Date: 20060127
  Receipt Date: 20051108
  Transmission Date: 20060701
  Serious: Yes (Other)
  Sender: FDA-Public Use
  Company Number: 2005154588

PATIENT
  Age: 65 Year
  Sex: Male
  Weight: 98.8842 kg

DRUGS (3)
  1. LYRICA [Suspect]
     Indication: MYALGIA
     Dosage: 100 MG (50 MG 2 IN 1 D) ORAL
     Route: 048
     Dates: start: 20051107
  2. DIOVAN [Concomitant]
  3. LIPITOR [Concomitant]

REACTIONS (4)
  - DIZZINESS [None]
  - DRY MOUTH [None]
  - DYSARTHRIA [None]
  - EUPHORIC MOOD [None]
